FAERS Safety Report 24323208 (Version 1)
Quarter: 2024Q3

REPORT INFORMATION
  Report Type: Spontaneous
  Country: US (occurrence: None)
  Receive Date: 20240913
  Receipt Date: 20240913
  Transmission Date: 20241016
  Serious: Yes (Hospitalization)
  Sender: Public
  Company Number: None

PATIENT
  Sex: Female

DRUGS (1)
  1. SKYRIZI [Suspect]
     Active Substance: RISANKIZUMAB-RZAA
     Indication: Crohn^s disease
     Dosage: OTHER QUANTITY : 360MG/2.4M;?OTHER FREQUENCY : EVERY 8 WEEKS;?
     Route: 058
     Dates: start: 202402

REACTIONS (3)
  - Crohn^s disease [None]
  - Abdominal pain [None]
  - Diarrhoea [None]
